FAERS Safety Report 25971456 (Version 3)
Quarter: 2025Q4

REPORT INFORMATION
  Report Type: Report from Study
  Country: US (occurrence: US)
  Receive Date: 20251028
  Receipt Date: 20251205
  Transmission Date: 20260117
  Serious: Yes (Hospitalization, Other)
  Sender: ABBVIE
  Company Number: US-ABBVIE-6516146

PATIENT
  Age: 80 Year
  Sex: Female

DRUGS (1)
  1. SKYRIZI [Suspect]
     Active Substance: RISANKIZUMAB-RZAA
     Indication: Product used for unknown indication
     Route: 058
     Dates: start: 20250329

REACTIONS (17)
  - Cervical vertebral fracture [Not Recovered/Not Resolved]
  - Vision blurred [Unknown]
  - Wrist fracture [Recovering/Resolving]
  - Somnolence [Unknown]
  - Joint dislocation [Not Recovered/Not Resolved]
  - Cervical vertebral fracture [Not Recovered/Not Resolved]
  - Speech disorder [Recovering/Resolving]
  - Drug ineffective [Unknown]
  - Asthenia [Recovering/Resolving]
  - Fall [Recovered/Resolved]
  - Cerebral haemorrhage [Unknown]
  - Amnesia [Not Recovered/Not Resolved]
  - Feeding disorder [Not Recovered/Not Resolved]
  - Aphasia [Not Recovered/Not Resolved]
  - Alice in wonderland syndrome [Unknown]
  - Fall [Not Recovered/Not Resolved]
  - Balance disorder [Not Recovered/Not Resolved]

NARRATIVE: CASE EVENT DATE: 20250101
